FAERS Safety Report 19869651 (Version 1)
Quarter: 2021Q3

REPORT INFORMATION
  Report Type: Other
  Country: JP (occurrence: JP)
  Receive Date: 20210922
  Receipt Date: 20210922
  Transmission Date: 20211014
  Serious: Yes (Other)
  Sender: FDA-Public Use
  Company Number: JP-ROCHE-2914451

PATIENT
  Age: 70 Year
  Sex: Male
  Weight: 57.8 kg

DRUGS (3)
  1. ATEZOLIZUMAB. [Suspect]
     Active Substance: ATEZOLIZUMAB
     Indication: SMALL CELL LUNG CANCER EXTENSIVE STAGE
     Dosage: 1200 MILLIGRAM
     Route: 041
     Dates: start: 20210105, end: 20210330
  2. ETOPOSIDE. [Concomitant]
     Active Substance: ETOPOSIDE
     Indication: SMALL CELL LUNG CANCER EXTENSIVE STAGE
     Dosage: 160 MILLIGRAM
     Route: 065
     Dates: start: 20210105, end: 20210401
  3. CARBOPLATIN. [Suspect]
     Active Substance: CARBOPLATIN
     Indication: SMALL CELL LUNG CANCER EXTENSIVE STAGE
     Dosage: 500 MILLIGRAM
     Route: 041
     Dates: start: 20210105, end: 20210330

REACTIONS (5)
  - Neutrophil count decreased [Recovered/Resolved]
  - Eczema [Recovered/Resolved]
  - Lung disorder [Recovering/Resolving]
  - White blood cell count decreased [Recovered/Resolved]
  - Hiccups [Recovering/Resolving]

NARRATIVE: CASE EVENT DATE: 20210108
